FAERS Safety Report 22270580 (Version 1)
Quarter: 2023Q2

REPORT INFORMATION
  Report Type: Spontaneous
  Country: US (occurrence: None)
  Receive Date: 20230430
  Receipt Date: 20230430
  Transmission Date: 20230722
  Serious: Yes (Other)
  Sender: FDA-Public Use
  Company Number: None

PATIENT
  Age: 79 Year
  Sex: Male
  Weight: 72 kg

DRUGS (4)
  1. ARTIFICIAL TEARS LUBRICANT EYE DROPS (CARBOXYMETHYLCELLULOSE SODIUM) [Suspect]
     Active Substance: CARBOXYMETHYLCELLULOSE SODIUM
     Indication: Dry eye
     Dosage: OTHER QUANTITY : 3 DROP(S);?FREQUENCY : AS NEEDED;?
     Route: 047
     Dates: start: 20221130, end: 20230202
  2. ZOLMITRIPTAN [Concomitant]
     Active Substance: ZOLMITRIPTAN
  3. LIQUID  MULTIVITAMIN [Concomitant]
  4. SENNA LAXATIVE [Concomitant]
     Active Substance: SENNOSIDES

REACTIONS (7)
  - Recalled product [None]
  - Recalled product administered [None]
  - Eye irritation [None]
  - Ocular hyperaemia [None]
  - Foreign body sensation in eyes [None]
  - Visual impairment [None]
  - Myopia [None]

NARRATIVE: CASE EVENT DATE: 20221130
